FAERS Safety Report 8064309-5 (Version None)
Quarter: 2012Q1

REPORT INFORMATION
  Report Type: 
  Country: None (occurrence: None)
  Receive Date: 20120123
  Receipt Date: 20120110
  Transmission Date: 20120608
  Serious: Yes (Hospitalization)
  Sender: FDA-Public Use
  Company Number: IE-MEDIMMUNE-MEDI-0014549

PATIENT
  Sex: Male

DRUGS (4)
  1. TRIMETHOPRIM [Concomitant]
  2. FERROUS SULFATE TAB [Concomitant]
  3. KAPSOVIT [Concomitant]
  4. SYNAGIS [Suspect]
     Route: 030
     Dates: start: 20111011, end: 20111011

REACTIONS (2)
  - KIDNEY INFECTION [None]
  - FEBRILE CONVULSION [None]
